FAERS Safety Report 9715425 (Version 1)
Quarter: 2013Q4

REPORT INFORMATION
  Report Type: Spontaneous
  Country: US (occurrence: US)
  Receive Date: 20131127
  Receipt Date: 20131127
  Transmission Date: 20140711
  Serious: No
  Sender: FDA-Public Use
  Company Number: US-009507513-1311USA010712

PATIENT
  Age: 58 Year
  Sex: Male

DRUGS (2)
  1. PEGINTRON [Suspect]
     Dosage: 150 MICROGRAM, QW
  2. REBETOL [Suspect]
     Dosage: 400 MG DAILY
     Route: 048

REACTIONS (1)
  - Injection site pain [Unknown]
